FAERS Safety Report 5456472-7 (Version None)
Quarter: 2007Q3

REPORT INFORMATION
  Report Type: 
  Country: None (occurrence: None)
  Receive Date: 20070918
  Receipt Date: 20070910
  Transmission Date: 20080115
  Serious: Yes (Hospitalization)
  Sender: FDA-Public Use
  Company Number: US-ELI_LILLY_AND_COMPANY-US200709001684

PATIENT
  Age: 55 Year
  Sex: Male
  Weight: 149.66 kg

DRUGS (8)
  1. BYETTA [Suspect]
     Indication: TYPE 2 DIABETES MELLITUS
     Dosage: 5 UG, 2/D
     Route: 058
     Dates: start: 20070701, end: 20070701
  2. ANTI-DIABETICS [Concomitant]
     Indication: TYPE 2 DIABETES MELLITUS
     Dosage: UNK, UNKNOWN
  3. INSULIN [Concomitant]
     Indication: TYPE 2 DIABETES MELLITUS
     Dosage: UNK, UNKNOWN
     Dates: end: 20070701
  4. INSULIN [Concomitant]
     Dosage: UNK, UNKNOWN
     Dates: start: 20070701
  5. LASIX [Concomitant]
     Indication: DRUG USE FOR UNKNOWN INDICATION
     Dates: end: 20070701
  6. LASIX [Concomitant]
     Dates: start: 20070801
  7. CARDIAC THERAPY [Concomitant]
     Indication: CARDIAC DISORDER
     Dosage: UNK, UNKNOWN
     Dates: end: 20070701
  8. CARDIAC THERAPY [Concomitant]
     Dosage: UNK, QOD
     Dates: start: 20070701

REACTIONS (5)
  - DYSPNOEA [None]
  - PULMONARY CONGESTION [None]
  - RENAL IMPAIRMENT [None]
  - SOFT TISSUE INFECTION [None]
  - WEIGHT DECREASED [None]
